FAERS Safety Report 10872574 (Version 2)
Quarter: 2015Q2

REPORT INFORMATION
  Report Type: Report from Study
  Country: CA (occurrence: CA)
  Receive Date: 20150227
  Receipt Date: 20150512
  Transmission Date: 20150821
  Serious: Yes (Death, Hospitalization, Other)
  Sender: FDA-Public Use
  Company Number: CA-AMGEN-CANSL2015017279

PATIENT
  Age: 93 Year
  Sex: Female

DRUGS (3)
  1. PROLIA [Suspect]
     Active Substance: DENOSUMAB
     Indication: OSTEOPOROSIS POSTMENOPAUSAL
     Dosage: 60 MG, Q6MO
     Route: 058
     Dates: start: 20131205
  2. NORVASC [Concomitant]
     Active Substance: AMLODIPINE BESYLATE
  3. PLAVIX [Concomitant]
     Active Substance: CLOPIDOGREL BISULFATE

REACTIONS (10)
  - Infection [Unknown]
  - Fall [Unknown]
  - Wound [Unknown]
  - Hypothermia [Unknown]
  - Death [Fatal]
  - Impaired healing [Unknown]
  - Cardiac disorder [Unknown]
  - Pneumonia [Unknown]
  - Lung disorder [Unknown]
  - Cardiac pacemaker insertion [Unknown]

NARRATIVE: CASE EVENT DATE: 201411
